FAERS Safety Report 13561217 (Version 1)
Quarter: 2017Q2

REPORT INFORMATION
  Report Type: Report from Study
  Country: US (occurrence: US)
  Receive Date: 20170518
  Receipt Date: 20170518
  Transmission Date: 20170830
  Serious: Yes (Hospitalization, Other)
  Sender: FDA-Public Use
  Company Number: US-BAXALTA-2017BLT002664

PATIENT
  Age: 62 Year
  Sex: Female

DRUGS (1)
  1. GAMMAGARD LIQUID [Suspect]
     Active Substance: HUMAN IMMUNOGLOBULIN G
     Indication: PRIMARY IMMUNODEFICIENCY SYNDROME
     Dosage: FIRST TREATMENT
     Route: 042

REACTIONS (9)
  - Musculoskeletal stiffness [Unknown]
  - Ill-defined disorder [Unknown]
  - Back pain [Unknown]
  - Headache [Unknown]
  - Cystitis [Unknown]
  - Chest discomfort [Unknown]
  - Infusion related reaction [Unknown]
  - Malaise [Unknown]
  - Clostridium difficile infection [Unknown]

NARRATIVE: CASE EVENT DATE: 20170324
